FAERS Safety Report 7711462-6 (Version None)
Quarter: 2011Q3

REPORT INFORMATION
  Report Type: 
  Country: None (occurrence: None)
  Receive Date: 20110826
  Receipt Date: 20110816
  Transmission Date: 20111222
  Serious: Yes (Other)
  Sender: FDA-Public Use
  Company Number: US-US-EMD SERONO, INC.-7042114

PATIENT
  Sex: Male

DRUGS (2)
  1. DEPRESSION MEDICATION [Concomitant]
  2. REBIF [Suspect]
     Indication: MULTIPLE SCLEROSIS
     Route: 058
     Dates: start: 20100827

REACTIONS (3)
  - CONVULSION [None]
  - PNEUMONIA [None]
  - MULTIPLE SCLEROSIS [None]
